FAERS Safety Report 5618401-2 (Version None)
Quarter: 2008Q1

REPORT INFORMATION
  Report Type: 
  Country: None (occurrence: None)
  Receive Date: 20080204
  Receipt Date: 20080118
  Transmission Date: 20080703
  Serious: No
  Sender: FDA-Public Use
  Company Number: 002#2#2008-00033

PATIENT
  Age: 74 Year
  Sex: Female
  Weight: 58.9676 kg

DRUGS (6)
  1. NEUPRO [Suspect]
     Indication: PARKINSON'S DISEASE
     Dosage: 2MG/24H, 1 IN 1 D, TRANSDERMAL; 4MG/24H, 1 IN 1 D, TRANSDERMAL; 6 MG/24H, 1 IN 1 D, TRANSDERMAL
     Route: 062
     Dates: start: 20070827, end: 20071005
  2. NEUPRO [Suspect]
     Indication: PARKINSON'S DISEASE
     Dosage: 2MG/24H, 1 IN 1 D, TRANSDERMAL; 4MG/24H, 1 IN 1 D, TRANSDERMAL; 6 MG/24H, 1 IN 1 D, TRANSDERMAL
     Route: 062
     Dates: start: 20071006, end: 20071204
  3. NEUPRO [Suspect]
     Indication: PARKINSON'S DISEASE
     Dosage: 2MG/24H, 1 IN 1 D, TRANSDERMAL; 4MG/24H, 1 IN 1 D, TRANSDERMAL; 6 MG/24H, 1 IN 1 D, TRANSDERMAL
     Route: 062
     Dates: start: 20071205
  4. FLORINEF [Suspect]
     Dosage: .1MG, 1 IN 1 D,
  5. SINEMET [Concomitant]
  6. FOSAMAX [Concomitant]

REACTIONS (6)
  - APPLICATION SITE PRURITUS [None]
  - APPLICATION SITE URTICARIA [None]
  - DIZZINESS [None]
  - FALL [None]
  - HYPOTENSION [None]
  - MUSCULOSKELETAL CHEST PAIN [None]
